FAERS Safety Report 5186258-2 (Version None)
Quarter: 2006Q4

REPORT INFORMATION
  Report Type: 
  Country: None (occurrence: None)
  Receive Date: 20061220
  Receipt Date: 20060915
  Transmission Date: 20070319
  Serious: Yes (Hospitalization)
  Sender: FDA-Public Use
  Company Number: FR-BRISTOL-MYERS SQUIBB COMPANY-13609714

PATIENT
  Age: 52 Year
  Sex: Male

DRUGS (6)
  1. FOSINOPRIL SODIUM [Suspect]
     Indication: HYPERTENSION
     Route: 048
     Dates: end: 20050121
  2. BISOPROLOL FUMARATE [Suspect]
     Route: 048
     Dates: start: 20050121, end: 20050125
  3. ISKEDYL [Suspect]
     Route: 048
     Dates: end: 20050125
  4. VASTAREL [Suspect]
     Route: 048
     Dates: end: 20050125
  5. ATACAND [Suspect]
     Route: 048
     Dates: start: 20050121, end: 20050125
  6. ZEFIX [Suspect]
     Indication: HEPATIC CIRRHOSIS
     Route: 048
     Dates: start: 20030315, end: 20050125

REACTIONS (3)
  - LACTIC ACIDOSIS [None]
  - RENAL FAILURE ACUTE [None]
  - TRANSAMINASES INCREASED [None]
